FAERS Safety Report 8284832-8 (Version None)
Quarter: 2012Q2

REPORT INFORMATION
  Report Type: 
  Country: None (occurrence: None)
  Receive Date: 20120413
  Receipt Date: 20110706
  Transmission Date: 20120825
  Serious: No
  Sender: FDA-Public Use
  Company Number: US-ASTRAZENECA-2011SE10269

PATIENT
  Age: 70 Year
  Sex: Female

DRUGS (3)
  1. NEXIUM [Suspect]
     Route: 048
  2. TOPROL-XL [Concomitant]
  3. SEROQUEL [Concomitant]

REACTIONS (12)
  - CARDIAC DISORDER [None]
  - NERVOUSNESS [None]
  - POOR PERIPHERAL CIRCULATION [None]
  - GASTROOESOPHAGEAL REFLUX DISEASE [None]
  - BREAST PAIN [None]
  - MUSCLE DISORDER [None]
  - INNER EAR DISORDER [None]
  - OSTEOPENIA [None]
  - SCIATICA [None]
  - BURSITIS [None]
  - RHEUMATOID ARTHRITIS [None]
  - VERTIGO [None]
